FAERS Safety Report 9336466 (Version 1)
Quarter: 2013Q2

REPORT INFORMATION
  Report Type: Spontaneous
  Country: GB (occurrence: GB)
  Receive Date: 20130607
  Receipt Date: 20130607
  Transmission Date: 20140414
  Serious: Yes (Life-Threatening, Hospitalization)
  Sender: FDA-Public Use
  Company Number: GB-ACCORD-017867

PATIENT
  Age: 77 Year
  Sex: Male
  Weight: 110 kg

DRUGS (10)
  1. SIMVASTATIN [Suspect]
     Indication: BLOOD CHOLESTEROL INCREASED
     Dosage: AT NIGHT
     Route: 048
  2. BICALUTAMIDE [Concomitant]
  3. OLANZAPINE [Concomitant]
  4. ISOSORBIDE [Concomitant]
  5. ATENOLOL [Concomitant]
  6. CITALOPRAM [Concomitant]
  7. SOLIFENACIN [Concomitant]
  8. TAMSULOSIN [Concomitant]
  9. ASPIRIN [Concomitant]
  10. AMLODIPINE [Concomitant]

REACTIONS (3)
  - Rhabdomyolysis [Recovering/Resolving]
  - Urosepsis [Unknown]
  - Renal failure acute [Unknown]
